FAERS Safety Report 17105640 (Version 1)
Quarter: 2019Q4

REPORT INFORMATION
  Report Type: Spontaneous
  Country: FR (occurrence: FR)
  Receive Date: 20191203
  Receipt Date: 20191203
  Transmission Date: 20200122
  Serious: Yes (Other)
  Sender: FDA-Public Use
  Company Number: FR-BAYER-2019-181913

PATIENT
  Age: 46 Year
  Sex: Female
  Weight: 52 kg

DRUGS (3)
  1. MIRENA [Suspect]
     Active Substance: LEVONORGESTREL
     Dosage: 20 MCG/24HR, CONT
     Route: 015
     Dates: start: 2017
  2. MIRENA [Suspect]
     Active Substance: LEVONORGESTREL
  3. ESSURE [Suspect]
     Active Substance: DEVICE
     Indication: FEMALE STERILISATION
     Dosage: UNK
     Dates: start: 2013, end: 20190920

REACTIONS (5)
  - Dyspareunia [Unknown]
  - Endometriosis [Unknown]
  - Embedded device [Unknown]
  - Dysmenorrhoea [Unknown]
  - Pelvic pain [Unknown]

NARRATIVE: CASE EVENT DATE: 20190920
